FAERS Safety Report 20142553 (Version 1)
Quarter: 2021Q4

REPORT INFORMATION
  Report Type: Spontaneous
  Country: US (occurrence: None)
  Receive Date: 20211202
  Receipt Date: 20211202
  Transmission Date: 20220303
  Serious: No
  Sender: FDA-Public Use
  Company Number: US-ROCHE-2718071

PATIENT

DRUGS (27)
  1. VALIUM [Suspect]
     Active Substance: DIAZEPAM
     Indication: Product used for unknown indication
     Route: 065
  2. XGEVA [Concomitant]
     Active Substance: DENOSUMAB
     Dosage: 120 MG/1.7 VIAL
  3. RIZATRIPTAN [Concomitant]
     Active Substance: RIZATRIPTAN
  4. VENLAFAXINE HCL [Concomitant]
     Active Substance: VENLAFAXINE HYDROCHLORIDE
  5. PROCRIT [Concomitant]
     Active Substance: ERYTHROPOIETIN
     Dosage: VIAL
  6. SENOKOT [Concomitant]
     Active Substance: SENNOSIDES
  7. MIRALAX [Concomitant]
     Active Substance: POLYETHYLENE GLYCOL 3350
     Dosage: DOSE POWDER
  8. WIXELA INHUB [Concomitant]
     Active Substance: FLUTICASONE PROPIONATE\SALMETEROL XINAFOATE
     Dosage: 100-50 MCG
  9. VOLTAREN XR [Concomitant]
     Active Substance: DICLOFENAC SODIUM
  10. SENNA [Concomitant]
     Active Substance: SENNA LEAF\SENNOSIDES\SENNOSIDES A AND B
  11. MELATONIN [Concomitant]
     Active Substance: MELATONIN
  12. CLARITIN [Concomitant]
     Active Substance: LORATADINE
  13. GARLIC [Concomitant]
     Active Substance: GARLIC
  14. CALCIUM [Concomitant]
     Active Substance: CALCIUM
  15. PROAIR HFA [Concomitant]
     Active Substance: ALBUTEROL SULFATE
     Dosage: 90 MCG
  16. METHOTREXATE SODIUM [Concomitant]
     Active Substance: METHOTREXATE SODIUM
  17. TRAMADOL HCL [Concomitant]
     Active Substance: TRAMADOL HYDROCHLORIDE
  18. METFORMIN HYDROCHLORIDE [Concomitant]
     Active Substance: METFORMIN HYDROCHLORIDE
  19. PRAVASTATIN SODIUM [Concomitant]
     Active Substance: PRAVASTATIN SODIUM
  20. LYSINE [Concomitant]
     Active Substance: LYSINE
  21. LEVOTHYROXINE SODIUM [Concomitant]
     Active Substance: LEVOTHYROXINE SODIUM
     Dosage: 100 MCG
  22. MAGNESIUM [Concomitant]
     Active Substance: MAGNESIUM
  23. OMEPRAZOLE [Concomitant]
     Active Substance: OMEPRAZOLE
  24. ANASTROZOLE [Concomitant]
     Active Substance: ANASTROZOLE
  25. VITAMIN C [Concomitant]
     Active Substance: ASCORBIC ACID
  26. VITAMIN E BIOEXTRA [Concomitant]
  27. IBRANCE [Concomitant]
     Active Substance: PALBOCICLIB

REACTIONS (1)
  - Hypersensitivity [Unknown]
